FAERS Safety Report 25642044 (Version 5)
Quarter: 2025Q4

REPORT INFORMATION
  Report Type: Report from Study
  Country: US (occurrence: US)
  Receive Date: 20250805
  Receipt Date: 20251203
  Transmission Date: 20260118
  Serious: Yes (Hospitalization)
  Sender: ABBVIE
  Company Number: US-ABBVIE-6397975

PATIENT
  Age: 43 Year
  Sex: Female

DRUGS (6)
  1. RINVOQ [Suspect]
     Active Substance: UPADACITINIB
     Indication: Colitis ulcerative
     Dosage: DRUG END DATE: 2025
     Route: 048
     Dates: start: 20250328
  2. RINVOQ [Suspect]
     Active Substance: UPADACITINIB
     Indication: Colitis ulcerative
     Dosage: LAST ADMIN DATE 2025?STRENGTH: 45MG?FOR 8 WEEKS
     Route: 048
     Dates: start: 20250420
  3. RINVOQ [Suspect]
     Active Substance: UPADACITINIB
     Indication: Colitis ulcerative
     Dosage: DRUG END DATE: 2025?DRUG START DATE: 2025
     Route: 048
  4. RINVOQ [Suspect]
     Active Substance: UPADACITINIB
     Indication: Colitis ulcerative
     Dosage: STRENGTH: 45MG
     Route: 048
     Dates: start: 202507
  5. RINVOQ [Suspect]
     Active Substance: UPADACITINIB
     Indication: Colitis ulcerative
     Dosage: START DATE: 2025
     Route: 048
  6. RINVOQ [Suspect]
     Active Substance: UPADACITINIB
     Indication: Colitis ulcerative
     Route: 048

REACTIONS (14)
  - Haematochezia [Unknown]
  - Influenza [Not Recovered/Not Resolved]
  - Respiratory tract infection [Unknown]
  - Enterocolitis viral [Recovering/Resolving]
  - Rectal haemorrhage [Recovering/Resolving]
  - Immunodeficiency [Unknown]
  - Defaecation urgency [Not Recovered/Not Resolved]
  - Insomnia [Unknown]
  - Abdominal distension [Unknown]
  - Proctalgia [Unknown]
  - Flatulence [Not Recovered/Not Resolved]
  - Nausea [Unknown]
  - Abdominal pain [Unknown]
  - Frequent bowel movements [Unknown]

NARRATIVE: CASE EVENT DATE: 20250101
